FAERS Safety Report 6877570-7 (Version None)
Quarter: 2010Q3

REPORT INFORMATION
  Report Type: 
  Country: None (occurrence: None)
  Receive Date: 20100727
  Receipt Date: 20100317
  Transmission Date: 20110219
  Serious: No
  Sender: FDA-Public Use
  Company Number: US-ABBOTT-10P-163-0634029-00

PATIENT
  Sex: Female
  Weight: 65.83 kg

DRUGS (9)
  1. SYNTHROID [Suspect]
     Indication: HYPOTHYROIDISM
     Dates: end: 20100301
  2. SYNTHROID [Suspect]
     Dates: start: 20100301
  3. AMBIEN [Concomitant]
     Indication: SLEEP DISORDER THERAPY
  4. ULTRACET [Concomitant]
     Indication: PAIN
  5. ATIVAN [Concomitant]
     Indication: SLEEP DISORDER THERAPY
  6. DIOVAN [Concomitant]
     Indication: HYPERTENSION
  7. LIPITOR [Concomitant]
     Indication: BLOOD CHOLESTEROL INCREASED
  8. MULTIPLE VITAMINS [Concomitant]
     Indication: VITAMIN SUPPLEMENTATION
  9. VITAMIN D [Concomitant]
     Indication: VITAMIN SUPPLEMENTATION

REACTIONS (2)
  - BLOOD THYROID STIMULATING HORMONE ABNORMAL [None]
  - HYPOTHYROIDISM [None]
